FAERS Safety Report 4501867-9 (Version None)
Quarter: 2004Q4

REPORT INFORMATION
  Report Type: 
  Country: None (occurrence: None)
  Receive Date: 20041109
  Receipt Date: 20041027
  Transmission Date: 20050328
  Serious: Yes (Hospitalization)
  Sender: FDA-Public Use
  Company Number: 2004084923

PATIENT
  Sex: Female

DRUGS (1)
  1. TAHOR (ATORVASTATIN) [Suspect]
     Indication: ILL-DEFINED DISORDER

REACTIONS (4)
  - GENERAL NUTRITION DISORDER [None]
  - NODULE [None]
  - OBESITY [None]
  - TENDON DISORDER [None]
